FAERS Safety Report 7286142-4 (Version None)
Quarter: 2011Q1

REPORT INFORMATION
  Report Type: 
  Country: None (occurrence: None)
  Receive Date: 20110210
  Receipt Date: 20110203
  Transmission Date: 20110831
  Serious: Yes (Life-Threatening, Hospitalization)
  Sender: FDA-Public Use
  Company Number: DE-TEVA-265700GER

PATIENT
  Age: 57 Year
  Sex: Female
  Weight: 110 kg

DRUGS (7)
  1. MUSARIL 50MG [Concomitant]
     Indication: MUSCLE TIGHTNESS
     Route: 048
     Dates: start: 20100608, end: 20100610
  2. BISOHEXAL 5MG [Concomitant]
     Indication: HYPERTENSION
     Route: 048
     Dates: start: 20080601
  3. MICARDIS PLUS 40/12.5 [Suspect]
     Indication: HYPERTENSION
     Dosage: 1 DF= 40MG TELMISARTAN + 12.5MG HCT
     Route: 048
     Dates: start: 20080601, end: 20100610
  4. NORVASC [Concomitant]
     Indication: HYPERTENSION
     Route: 048
     Dates: start: 20100401
  5. REWODINA 50 [Suspect]
     Indication: BACK PAIN
     Route: 048
     Dates: start: 20100608, end: 20100610
  6. L-THYROX 75 [Concomitant]
     Indication: HYPOTHYROIDISM
     Route: 048
     Dates: start: 20080601
  7. VOLTAREN DOLO 25MG [Suspect]
     Indication: BACK PAIN
     Route: 048
     Dates: start: 20100605, end: 20100607

REACTIONS (1)
  - ANAEMIA HAEMOLYTIC AUTOIMMUNE [None]
